FAERS Safety Report 17637995 (Version 1)
Quarter: 2020Q2

REPORT INFORMATION
  Report Type: Spontaneous
  Country: CA (occurrence: CA)
  Receive Date: 20200407
  Receipt Date: 20200407
  Transmission Date: 20200713
  Serious: Yes (Death)
  Sender: FDA-Public Use
  Company Number: CA-PFIZER INC-2019541182

PATIENT
  Age: 51 Year
  Sex: Male

DRUGS (3)
  1. SUTENT [Suspect]
     Active Substance: SUNITINIB MALATE
     Indication: RENAL CANCER
     Dosage: 50 MG, CYCLIC (DAILY 4WEEKS/6)
  2. SUTENT [Suspect]
     Active Substance: SUNITINIB MALATE
     Dosage: 50 MG, CYCLIC (14 DAYS ON, 7 DAYS OFF)
     Dates: start: 20191216
  3. SUTENT [Suspect]
     Active Substance: SUNITINIB MALATE
     Dosage: 37.5 MG, DAILY [1 CAPSULE (12.5MG) AND 1 CAPSULE (25MG) DIE (TOTAL OF 37.5MG) (DAILY) 14/21]
     Dates: start: 20191216

REACTIONS (3)
  - Death [Fatal]
  - Decreased immune responsiveness [Unknown]
  - Renal disorder [Unknown]

NARRATIVE: CASE EVENT DATE: 20200322
